FAERS Safety Report 13767526 (Version 1)
Quarter: 2017Q3

REPORT INFORMATION
  Report Type: Spontaneous
  Country: US (occurrence: US)
  Receive Date: 20170719
  Receipt Date: 20170719
  Transmission Date: 20171127
  Serious: No
  Sender: FDA-Public Use
  Company Number: None

PATIENT
  Age: 74 Year
  Sex: Female
  Weight: 45.85 kg

DRUGS (10)
  1. MULTI VITAMIN [Concomitant]
     Active Substance: VITAMINS
  2. MIRTAZAPINE 15 MG TABLETS [Suspect]
     Active Substance: MIRTAZAPINE
     Indication: PANIC ATTACK
     Dosage: 1 TABLET BY MOUTH EVERY NIGHT EVERY NIGHT MOUTH
     Route: 048
     Dates: start: 20170627, end: 20170627
  3. KRILL OIL [Concomitant]
     Active Substance: DIETARY SUPPLEMENT
  4. TUSSIN DM MAX NON DROWSY [Concomitant]
     Active Substance: DEXTROMETHORPHAN HYDROBROMIDE\GUAIFENESIN
  5. DIAZEPAM. [Concomitant]
     Active Substance: DIAZEPAM
  6. OXYGEN. [Concomitant]
     Active Substance: OXYGEN
  7. VITAMIN D [Concomitant]
     Active Substance: CHOLECALCIFEROL
  8. OMEGA 3 [Concomitant]
     Active Substance: OMEGA-3 FATTY ACIDS
  9. ALIVE WOMENS 50+ [Concomitant]
  10. COUGH SYRUP [Concomitant]
     Active Substance: DEXTROMETHORPHAN HYDROBROMIDE\GUAIFENESIN

REACTIONS (1)
  - Feeling abnormal [None]

NARRATIVE: CASE EVENT DATE: 20170627
